FAERS Safety Report 7305984-X (Version None)
Quarter: 2011Q1

REPORT INFORMATION
  Report Type: 
  Country: None (occurrence: None)
  Receive Date: 20110222
  Receipt Date: 20110222
  Transmission Date: 20110831
  Serious: Yes (Death, Hospitalization)
  Sender: FDA-Public Use
  Company Number: MX-AMGEN-MEXSP2011006828

PATIENT
  Age: 67 Year
  Sex: Female

DRUGS (1)
  1. NPLATE [Suspect]
     Indication: THROMBOCYTOPENIA
     Dosage: 250 UNK, ONE TIME DOSE
     Dates: start: 20110202, end: 20110202

REACTIONS (4)
  - VASCULAR HEADACHE [None]
  - BLOOD PRESSURE INCREASED [None]
  - THROMBOCYTOPENIA [None]
  - SUBARACHNOID HAEMORRHAGE [None]
